FAERS Safety Report 9976307 (Version 1)
Quarter: 2014Q1

REPORT INFORMATION
  Report Type: Report from Study
  Country: US (occurrence: US)
  Receive Date: 20140306
  Receipt Date: 20140306
  Transmission Date: 20141002
  Serious: No
  Sender: FDA-Public Use
  Company Number: US-ABBVIE-13P-163-1167301-00

PATIENT
  Age: 43 Year
  Sex: Female
  Weight: 81.72 kg

DRUGS (5)
  1. HUMIRA [Suspect]
     Indication: CROHN^S DISEASE
     Dates: start: 20131029
  2. PREDNISONE [Concomitant]
     Indication: CROHN^S DISEASE
  3. IRON [Concomitant]
     Indication: ANAEMIA
  4. FLONASE [Concomitant]
     Indication: HYPERSENSITIVITY
  5. ALEVE [Concomitant]
     Indication: HYPERSENSITIVITY

REACTIONS (2)
  - Sinus disorder [Not Recovered/Not Resolved]
  - Cough [Not Recovered/Not Resolved]
